FAERS Safety Report 8521363-1 (Version None)
Quarter: 2012Q3

REPORT INFORMATION
  Report Type: 
  Country: None (occurrence: None)
  Receive Date: 20120719
  Receipt Date: 20120713
  Transmission Date: 20120928
  Serious: Yes (Other)
  Sender: FDA-Public Use
  Company Number: US-ASTRAZENECA-2012SE48818

PATIENT
  Age: 55 Year
  Sex: Male
  Weight: 104.3 kg

DRUGS (7)
  1. ZANTAC [Concomitant]
  2. LISINOPRIL [Concomitant]
     Route: 048
  3. METFORMIN HYDROCHLORIDE [Concomitant]
  4. NEXIUM [Suspect]
     Route: 048
  5. NEXIUM [Suspect]
     Indication: GASTROOESOPHAGEAL REFLUX DISEASE
     Route: 048
     Dates: start: 20020101, end: 20120501
  6. WELLBUTRIN XL [Concomitant]
     Dosage: 150
  7. XANAX [Concomitant]

REACTIONS (5)
  - DEPRESSION [None]
  - HYPERTENSION [None]
  - INTENTIONAL DRUG MISUSE [None]
  - BLINDNESS UNILATERAL [None]
  - ANXIETY [None]
